FAERS Safety Report 6037528-7 (Version None)
Quarter: 2009Q1

REPORT INFORMATION
  Report Type: 
  Country: None (occurrence: None)
  Receive Date: 20090114
  Receipt Date: 20090108
  Transmission Date: 20090719
  Serious: Yes (Death)
  Sender: FDA-Public Use
  Company Number: GB-ELI_LILLY_AND_COMPANY-GB200901001183

PATIENT
  Sex: Male
  Weight: 114.9 kg

DRUGS (3)
  1. BYETTA [Suspect]
     Dosage: 5 UG, UNKNOWN
     Route: 065
     Dates: start: 20081124, end: 20081223
  2. BYETTA [Suspect]
     Dosage: 10 UG, UNKNOWN
     Route: 065
     Dates: start: 20081224
  3. GLICLAZIDE [Concomitant]
     Dosage: 80 MG, UNKNOWN
     Route: 065

REACTIONS (1)
  - DEATH [None]
